FAERS Safety Report 21182901 (Version 2)
Quarter: 2022Q4

REPORT INFORMATION
  Report Type: Spontaneous
  Country: US (occurrence: US)
  Receive Date: 20220808
  Receipt Date: 20221213
  Transmission Date: 20230112
  Serious: Yes (Other)
  Sender: FDA-Public Use
  Company Number: US-NOVARTISPH-NVSC2022US173870

PATIENT
  Sex: Female

DRUGS (3)
  1. PROMACTA [Suspect]
     Active Substance: ELTROMBOPAG OLAMINE
     Indication: Thrombocytopenia
     Dosage: UNK
     Route: 065
  2. PROMACTA [Suspect]
     Active Substance: ELTROMBOPAG OLAMINE
     Dosage: 12.5 MG (BY MOUTH) (6 TIMES A WEEK, MONDAY, TUESDAY, WEDNESDAY, FRIDAY, SATURDAY)
     Route: 048
     Dates: start: 20220525
  3. PROMACTA [Suspect]
     Active Substance: ELTROMBOPAG OLAMINE
     Dosage: 25 MG, QD
     Route: 048
     Dates: start: 20221001

REACTIONS (4)
  - Diverticulitis [Unknown]
  - Platelet count decreased [Unknown]
  - Fatigue [Unknown]
  - Nausea [Unknown]
